FAERS Safety Report 13861934 (Version 1)
Quarter: 2017Q3

REPORT INFORMATION
  Report Type: Spontaneous
  Country: US (occurrence: US)
  Receive Date: 20170811
  Receipt Date: 20170811
  Transmission Date: 20171127
  Serious: No
  Sender: FDA-Public Use
  Company Number: US-ACTELION-A-NJ2016-144557

PATIENT
  Age: 13 Year
  Sex: Female

DRUGS (5)
  1. IMIPRAMINE [Concomitant]
     Active Substance: IMIPRAMINE
     Dosage: 1.5 UNK, QD
     Route: 048
     Dates: start: 20140516
  2. ZAVESCA [Suspect]
     Active Substance: MIGLUSTAT
     Indication: LIPIDOSIS
     Dosage: 200 MG, BID
     Route: 048
     Dates: start: 20140527
  3. KEPPRA [Concomitant]
     Active Substance: LEVETIRACETAM
     Dosage: 6 ML, BID
     Route: 048
     Dates: start: 20160815
  4. GLYCOPYRROLATE. [Concomitant]
     Active Substance: GLYCOPYRROLATE
     Dosage: 1 MG, UNK
     Route: 048
     Dates: start: 20160815
  5. IRON [Concomitant]
     Active Substance: IRON
     Dosage: 27 MG, QD
     Route: 048
     Dates: start: 20140516

REACTIONS (2)
  - Gastroenteritis viral [Unknown]
  - Diarrhoea [Unknown]
